FAERS Safety Report 8605008-8 (Version None)
Quarter: 2012Q3

REPORT INFORMATION
  Report Type: 
  Country: None (occurrence: None)
  Receive Date: 20120820
  Receipt Date: 20120810
  Transmission Date: 20120928
  Serious: Yes (Other)
  Sender: FDA-Public Use
  Company Number: US-ASTRAZENECA-2012SE56680

PATIENT
  Age: 56 Year
  Sex: Female
  Weight: 81.6 kg

DRUGS (10)
  1. PREDNISONE TAB [Concomitant]
     Indication: RHEUMATOID ARTHRITIS
     Route: 048
  2. SPIRONOLACTONE [Concomitant]
     Indication: JOINT SWELLING
  3. METHOTREXATE [Concomitant]
     Indication: RHEUMATOID ARTHRITIS
     Route: 048
  4. OMNARIS [Concomitant]
     Indication: MULTIPLE ALLERGIES
     Dosage: 2 SPRAYS, QOD
     Route: 045
  5. SINGULAIR [Concomitant]
     Indication: MULTIPLE ALLERGIES
     Route: 048
  6. HUMIRA [Concomitant]
     Indication: RHEUMATOID ARTHRITIS
     Route: 058
  7. NEXIUM [Suspect]
     Route: 048
     Dates: start: 20110801
  8. NEXIUM [Suspect]
     Indication: GASTROOESOPHAGEAL REFLUX DISEASE
     Route: 048
     Dates: start: 20040101, end: 20110802
  9. IBUPROFEN [Concomitant]
     Indication: PAIN
     Route: 048
  10. ASTEPRO [Concomitant]
     Indication: MULTIPLE ALLERGIES
     Dosage: 2 SPRAYS, QOD
     Route: 045

REACTIONS (8)
  - IRITIS [None]
  - WEIGHT INCREASED [None]
  - OEDEMA PERIPHERAL [None]
  - MUSCULOSKELETAL STIFFNESS [None]
  - GASTROOESOPHAGEAL REFLUX DISEASE [None]
  - ARTHRALGIA [None]
  - DRUG DOSE OMISSION [None]
  - VAGINAL HAEMORRHAGE [None]
